FAERS Safety Report 6615290-4 (Version None)
Quarter: 2010Q1

REPORT INFORMATION
  Report Type: 
  Country: None (occurrence: None)
  Receive Date: 20100305
  Receipt Date: 20100302
  Transmission Date: 20100710
  Serious: Yes (Hospitalization, Other)
  Sender: FDA-Public Use
  Company Number: US-ROXANE LABORATORIES, INC.-2010-RO-00222RO

PATIENT
  Age: 92 Year
  Sex: Female
  Weight: 55 kg

DRUGS (12)
  1. LEVETIRACETAM [Suspect]
     Indication: PARTIAL SEIZURES
     Dosage: 1000 MG
     Route: 048
  2. LEVETIRACETAM [Suspect]
     Dosage: 500 MG
     Route: 048
  3. AMLODIPINE [Suspect]
     Indication: HYPERTENSION
     Dosage: 5 MG
  4. FUROSEMIDE [Suspect]
  5. METOPROLOL TARTRATE [Suspect]
     Indication: HYPERTENSION
     Dosage: 100 MG
  6. CLOPIDOGREL [Suspect]
     Indication: CEREBROVASCULAR ACCIDENT PROPHYLAXIS
     Dosage: 37.5 MG
  7. ACETYLSALICYLIC ACID [Suspect]
     Indication: CEREBROVASCULAR ACCIDENT PROPHYLAXIS
     Dosage: 162 MG
  8. ESOMEPRAZOLE [Suspect]
     Indication: GASTROOESOPHAGEAL REFLUX DISEASE
     Dosage: 40 MG
  9. FEXOFENADINE [Suspect]
     Indication: RHINITIS ALLERGIC
     Dosage: 120 MG
  10. NORTRIPTYLINE HCL [Suspect]
     Indication: DEPRESSION
     Dosage: 20 MG
  11. VITAMIN B COMPLEX CAP [Suspect]
     Indication: VITAMIN B12 DEFICIENCY
  12. ATORVASTATIN CALCIUM [Suspect]

REACTIONS (2)
  - DEPRESSION [None]
  - PARTIAL SEIZURES [None]
